FAERS Safety Report 5129912-0 (Version None)
Quarter: 2006Q4

REPORT INFORMATION
  Report Type: 
  Country: None (occurrence: None)
  Receive Date: 20061012
  Receipt Date: 20061004
  Transmission Date: 20070319
  Serious: Yes (Hospitalization)
  Sender: FDA-Public Use
  Company Number: CIP06002270

PATIENT
  Age: 92 Year
  Sex: Male

DRUGS (7)
  1. FURADANTIN [Suspect]
     Dosage: 3 DF DAILY, ORAL
     Route: 048
     Dates: start: 20060904, end: 20060912
  2. COUMADIN [Suspect]
     Dosage: 2 MG ONCE DAILY, ORAL
     Route: 048
     Dates: start: 20050715, end: 20060912
  3. ALLOPURINOL [Concomitant]
  4. FUROSEMIDE [Concomitant]
  5. EUPRESSYL (URAPIDIL) CAPSULE [Concomitant]
  6. RAMIPRIL [Concomitant]
  7. OMIX (TAMSULOSIN HYDROCHLORIDE) [Concomitant]

REACTIONS (4)
  - ANAEMIA [None]
  - DRUG INTERACTION [None]
  - DUODENAL ULCER HAEMORRHAGE [None]
  - INTERNATIONAL NORMALISED RATIO INCREASED [None]
